FAERS Safety Report 8125682-2 (Version None)
Quarter: 2012Q1

REPORT INFORMATION
  Report Type: 
  Country: None (occurrence: None)
  Receive Date: 20120209
  Receipt Date: 20120207
  Transmission Date: 20120608
  Serious: Yes (Disabling, Other)
  Sender: FDA-Public Use
  Company Number: US-PFIZER INC-2012018909

PATIENT
  Sex: Female
  Weight: 73.469 kg

DRUGS (17)
  1. AMITRIPTYLINE HCL [Suspect]
     Indication: DEPRESSION
     Dosage: 25 MG, 3X/DAY
     Dates: start: 20110101
  2. LISINOPRIL [Concomitant]
     Indication: HYPERTENSION
     Dosage: 5 MG, 2X/DAY
  3. METFORMIN [Concomitant]
     Indication: DIABETES MELLITUS
     Dosage: 500 MG, 2X/DAY
  4. SIMVASTATIN [Concomitant]
     Indication: BLOOD CHOLESTEROL ABNORMAL
     Dosage: 75 MG, UNK
  5. ZOLOFT [Suspect]
     Dosage: UNK
  6. METOPROLOL [Concomitant]
     Indication: CARDIAC DISORDER
     Dosage: UNK
  7. ACETYLSALICYLIC ACID [Concomitant]
     Indication: CARDIAC DISORDER
     Dosage: 81 MG, DAILY
  8. PROZAC [Concomitant]
     Dosage: UNK
  9. PRISTIQ [Suspect]
     Dosage: UNK
     Route: 048
  10. WELLBUTRIN [Suspect]
     Indication: DEPRESSION
     Dosage: UNK
     Route: 048
  11. NITROGLYCERIN [Concomitant]
     Indication: ANTICOAGULANT THERAPY
     Dosage: 6.25 MG, DAILY
     Route: 048
  12. WELLBUTRIN [Suspect]
     Indication: SMOKING CESSATION THERAPY
  13. DILTIAZEM [Concomitant]
     Indication: HYPERTENSION
     Dosage: 120 MG, DAILY
  14. NEXIUM [Concomitant]
     Indication: GASTRIC DISORDER
     Dosage: 40 MG, DAILY
  15. DESIPRAMIDE HCL [Suspect]
     Indication: DEPRESSION
     Dosage: 75 MG DAILY (3 AT NIGHT)
     Dates: start: 20110101
  16. REGLAN [Suspect]
     Indication: GASTRIC DISORDER
     Dosage: 25 MG, DAILY
     Route: 048
  17. PLAVIX [Concomitant]
     Indication: ANTICOAGULANT THERAPY
     Dosage: 75 MG, UNK

REACTIONS (8)
  - MIDDLE INSOMNIA [None]
  - ABNORMAL BEHAVIOUR [None]
  - CRYING [None]
  - DRUG INEFFECTIVE [None]
  - VOMITING [None]
  - DECREASED APPETITE [None]
  - APHAGIA [None]
  - FEELINGS OF WORTHLESSNESS [None]
